FAERS Safety Report 10156639 (Version 1)
Quarter: 2014Q2

REPORT INFORMATION
  Report Type: Spontaneous
  Country: US (occurrence: None)
  Receive Date: 20140506
  Receipt Date: 20140506
  Transmission Date: 20141212
  Serious: Yes (Hospitalization)
  Sender: FDA-Public Use
  Company Number: None

PATIENT
  Age: 78 Year
  Sex: Male
  Weight: 85.4 kg

DRUGS (4)
  1. PEMETREXED (ALIMTA; LY231514) [Suspect]
  2. BEVACIZUMAB [Suspect]
  3. CARBOPLATIN [Suspect]
  4. PACLITAXEL (TAXOL) [Suspect]

REACTIONS (1)
  - Dyspnoea [None]
